FAERS Safety Report 7119116-4 (Version None)
Quarter: 2010Q4

REPORT INFORMATION
  Report Type: 
  Country: None (occurrence: None)
  Receive Date: 20101123
  Receipt Date: 20101111
  Transmission Date: 20110411
  Serious: Yes (Other)
  Sender: FDA-Public Use
  Company Number: US-ROCHE-741974

PATIENT
  Sex: Male

DRUGS (1)
  1. AVASTIN [Suspect]
     Route: 065

REACTIONS (4)
  - EYE IRRITATION [None]
  - IMMUNE SYSTEM DISORDER [None]
  - INFLAMMATION [None]
  - INJECTION SITE PAIN [None]
